FAERS Safety Report 6379062-0 (Version None)
Quarter: 2009Q3

REPORT INFORMATION
  Report Type: 
  Country: None (occurrence: None)
  Receive Date: 20090928
  Receipt Date: 20090923
  Transmission Date: 20100115
  Serious: Yes (Death, Hospitalization)
  Sender: FDA-Public Use
  Company Number: CH-ASTRAZENECA-2009SE14822

PATIENT
  Age: 75 Year
  Sex: Male

DRUGS (14)
  1. SEROQUEL [Suspect]
     Route: 048
     Dates: start: 20090609
  2. TRAMADOL HYDROCHLORIDE [Interacting]
     Route: 048
     Dates: start: 20090609
  3. LYRICA [Interacting]
     Indication: POLYNEUROPATHY
     Route: 048
     Dates: start: 20090101
  4. NEXIUM [Concomitant]
     Route: 048
  5. CLEXANE [Concomitant]
     Route: 058
  6. ACETAMINOPHEN [Concomitant]
     Route: 048
  7. ASPEGIC 1000 [Concomitant]
     Route: 048
  8. ATORVASTATIN CALCIUM [Concomitant]
     Route: 048
     Dates: start: 20090605
  9. LAXOBERON [Concomitant]
     Dosage: 20 GTT DROPS TWO TIMES A DAY
     Route: 048
  10. PROSCAR [Concomitant]
     Route: 048
  11. XATRAL [Concomitant]
     Route: 048
  12. SERETIDE [Concomitant]
     Route: 055
  13. SPIRIVA [Concomitant]
     Route: 055
  14. DOSPIR [Concomitant]
     Route: 055

REACTIONS (2)
  - DEPRESSED LEVEL OF CONSCIOUSNESS [None]
  - DRUG INTERACTION [None]
